FAERS Safety Report 5213392-0 (Version None)
Quarter: 2007Q1

REPORT INFORMATION
  Report Type: 
  Country: None (occurrence: None)
  Receive Date: 20070119
  Receipt Date: 20061026
  Transmission Date: 20070707
  Serious: Yes (Hospitalization)
  Sender: FDA-Public Use
  Company Number: US-GLAXOSMITHKLINE-A0625078A

PATIENT
  Age: 85 Year
  Sex: Female

DRUGS (17)
  1. ARIXTRA [Suspect]
     Indication: DEEP VEIN THROMBOSIS
     Dosage: 7.5MG PER DAY
     Route: 058
     Dates: start: 20060901
  2. CEFTIN [Suspect]
     Indication: URINARY TRACT INFECTION
     Dosage: 500MG TWICE PER DAY
     Route: 048
  3. UNKNOWN MEDICATION [Concomitant]
  4. CEFTIN [Concomitant]
  5. FOSAMAX [Concomitant]
  6. NEXIUM [Concomitant]
  7. CALCIUM [Concomitant]
  8. DILANTIN [Concomitant]
  9. FUROSEMIDE [Concomitant]
  10. METOPROLOL SUCCINATE [Concomitant]
  11. NORVASC [Concomitant]
  12. CELEXA [Concomitant]
  13. NAMENDA [Concomitant]
  14. FOLIC ACID [Concomitant]
  15. LIPITOR [Concomitant]
  16. IRON [Concomitant]
  17. ARICEPT [Concomitant]

REACTIONS (1)
  - DIARRHOEA [None]
